FAERS Safety Report 7374771-9 (Version None)
Quarter: 2011Q1

REPORT INFORMATION
  Report Type: 
  Country: None (occurrence: None)
  Receive Date: 20110325
  Receipt Date: 20101119
  Transmission Date: 20110831
  Serious: No
  Sender: FDA-Public Use
  Company Number: US-MYLANLABS-2010S1019786

PATIENT
  Age: 81 Year
  Sex: Male
  Weight: 65.77 kg

DRUGS (6)
  1. VICODIN [Concomitant]
     Dosage: BREAKTHROUGH PAIN
  2. FENTANYL-100 [Suspect]
     Indication: SPINAL COLUMN STENOSIS
     Dosage: CHANGED Q72H
     Route: 062
     Dates: start: 20080101, end: 20100101
  3. FENTANYL-100 [Suspect]
     Indication: ARTHRALGIA
     Dosage: CHANGED Q72H
     Route: 062
     Dates: start: 20080101, end: 20100101
  4. FENTANYL-100 [Suspect]
     Dosage: CHANGED Q72H
     Route: 062
     Dates: start: 20080101, end: 20100101
  5. FENTANYL-100 [Suspect]
     Dosage: CHANGED Q72H
     Route: 062
     Dates: start: 20080101, end: 20100101
  6. VICODIN ES [Concomitant]
     Dosage: BREAKTHROUGH PAIN

REACTIONS (4)
  - APPLICATION SITE BURN [None]
  - APPLICATION SITE SWELLING [None]
  - APPLICATION SITE RASH [None]
  - APPLICATION SITE PRURITUS [None]
